FAERS Safety Report 14165755 (Version 2)
Quarter: 2017Q4

REPORT INFORMATION
  Report Type: Report from Study
  Country: CA (occurrence: CA)
  Receive Date: 20171107
  Receipt Date: 20171229
  Transmission Date: 20180321
  Serious: Yes (Hospitalization, Other)
  Sender: FDA-Public Use
  Company Number: CA-JNJFOC-20171018879

PATIENT
  Age: 31 Year
  Sex: Female

DRUGS (1)
  1. SIMPONI [Suspect]
     Active Substance: GOLIMUMAB
     Indication: PSORIATIC ARTHROPATHY
     Dosage: STRENGTH = 50 MG
     Route: 058
     Dates: start: 20170928

REACTIONS (6)
  - Brain abscess [Unknown]
  - Hospitalisation [Unknown]
  - Seizure [Unknown]
  - Tooth abscess [Unknown]
  - Liver abscess [Unknown]
  - Nasal abscess [Unknown]

NARRATIVE: CASE EVENT DATE: 2017
